FAERS Safety Report 8891083 (Version 1)
Quarter: 2012Q4

REPORT INFORMATION
  Report Type: 
  Country: US (occurrence: US)
  Receive Date: 20121107
  Receipt Date: 20121107
  Transmission Date: 20130627
  Serious: Yes (Hospitalization)
  Sender: FDA-Public Use
  Company Number: US-PFIZER INC-2012277271

PATIENT
  Age: 22 Year
  Sex: Male

DRUGS (4)
  1. XANAX [Suspect]
     Dosage: 27mg (54 tablets of 0.5 mg)
  2. METHADONE [Suspect]
     Indication: DEPENDENCE
     Dosage: 175 mg, 2x/day
  3. KLONOPIN [Concomitant]
     Dosage: UNK
  4. ATIVAN [Concomitant]
     Dosage: 1 mg, as needed

REACTIONS (3)
  - Encephalopathy [Recovering/Resolving]
  - Loss of consciousness [Recovering/Resolving]
  - Dyspnoea [Recovering/Resolving]
